FAERS Safety Report 19775896 (Version 2)
Quarter: 2022Q4

REPORT INFORMATION
  Report Type: Report from Study
  Country: MX (occurrence: MX)
  Receive Date: 20210901
  Receipt Date: 20221227
  Transmission Date: 20230113
  Serious: Yes (Other)
  Sender: FDA-Public Use
  Company Number: MX-NOVARTISPH-NVSC2021MX196589

PATIENT
  Age: 43 Year
  Sex: Female

DRUGS (2)
  1. TASIGNA [Suspect]
     Active Substance: NILOTINIB
     Indication: Chronic myeloid leukaemia
     Dosage: 800 MG, QD
     Route: 048
     Dates: start: 20180802
  2. TASIGNA [Suspect]
     Active Substance: NILOTINIB
     Dosage: 600 MG, Q24H
     Route: 048

REACTIONS (10)
  - Haematotoxicity [Not Recovered/Not Resolved]
  - Hepatotoxicity [Unknown]
  - COVID-19 [Recovering/Resolving]
  - Anosmia [Unknown]
  - Ageusia [Unknown]
  - Inappropriate schedule of product administration [Unknown]
  - Arthralgia [Unknown]
  - Pain [Unknown]
  - Headache [Unknown]
  - Cytogenetic analysis abnormal [Unknown]

NARRATIVE: CASE EVENT DATE: 20210801
